FAERS Safety Report 6127781-3 (Version None)
Quarter: 2009Q1

REPORT INFORMATION
  Report Type: 
  Country: None (occurrence: None)
  Receive Date: 20090320
  Receipt Date: 20090320
  Transmission Date: 20090719
  Serious: Yes (Other)
  Sender: FDA-Public Use
  Company Number: None

PATIENT
  Sex: Male
  Weight: 76.2 kg

DRUGS (2)
  1. BUMETANIDE [Suspect]
     Indication: CARDIAC FAILURE CONGESTIVE
     Dosage: 1MG X1 IV
     Route: 042
  2. BUMETANIDE [Suspect]
     Indication: DIURETIC THERAPY
     Dosage: 1MG X1 IV
     Route: 042

REACTIONS (1)
  - BURNING SENSATION [None]
